FAERS Safety Report 23247707 (Version 1)
Quarter: 2023Q4

REPORT INFORMATION
  Report Type: Spontaneous
  Country: US (occurrence: None)
  Receive Date: 20231130
  Receipt Date: 20231130
  Transmission Date: 20240109
  Serious: Yes (Death)
  Sender: FDA-Public Use
  Company Number: None

PATIENT
  Age: 71 Year
  Sex: Male

DRUGS (1)
  1. PROMACTA [Suspect]
     Active Substance: ELTROMBOPAG OLAMINE
     Indication: Immune thrombocytopenia
     Dosage: FREQUENCY : DAILY;?
     Route: 048
     Dates: start: 20210325, end: 20231019

REACTIONS (7)
  - Cardio-respiratory arrest [None]
  - Fall [None]
  - Haemodialysis [None]
  - Hypotension [None]
  - Mental status changes [None]
  - Unresponsive to stimuli [None]
  - Vascular dissection [None]

NARRATIVE: CASE EVENT DATE: 20231019
